FAERS Safety Report 14630711 (Version 2)
Quarter: 2018Q2

REPORT INFORMATION
  Report Type: Spontaneous
  Country: ES (occurrence: ES)
  Receive Date: 20180313
  Receipt Date: 20180423
  Transmission Date: 20180711
  Serious: Yes (Death, Other)
  Sender: FDA-Public Use
  Company Number: ES-ADIENNEP-2018AD000137

PATIENT
  Age: 23 Year
  Sex: Male

DRUGS (4)
  1. THIOTEPA. [Suspect]
     Active Substance: THIOTEPA
     Indication: ACUTE LYMPHOCYTIC LEUKAEMIA RECURRENT
     Dates: start: 20140928
  2. FLUDARABINE [Suspect]
     Active Substance: FLUDARABINE PHOSPHATE
     Indication: ACUTE LYMPHOCYTIC LEUKAEMIA RECURRENT
     Dates: start: 20140928
  3. BUSULFAN. [Suspect]
     Active Substance: BUSULFAN
     Indication: ACUTE LYMPHOCYTIC LEUKAEMIA RECURRENT
     Dates: start: 20140928
  4. RITUXIMAB. [Suspect]
     Active Substance: RITUXIMAB

REACTIONS (6)
  - Epstein-Barr virus infection [Recovered/Resolved]
  - Post transplant lymphoproliferative disorder [Recovered/Resolved]
  - Autoimmune lymphoproliferative syndrome [Unknown]
  - Acute lymphocytic leukaemia recurrent [Unknown]
  - Cytomegalovirus infection [Unknown]
  - Viral haemorrhagic cystitis [Unknown]

NARRATIVE: CASE EVENT DATE: 20141015
